FAERS Safety Report 8915354 (Version 2)
Quarter: 2013Q1

REPORT INFORMATION
  Report Type: Report from Study
  Country: AU (occurrence: AU)
  Receive Date: 20121116
  Receipt Date: 20130220
  Transmission Date: 20140127
  Serious: Yes (Hospitalization)
  Sender: FDA-Public Use
  Company Number: AU-ELI_LILLY_AND_COMPANY-AU201208007909

PATIENT
  Age: 58 Year
  Sex: Female
  Weight: 91 kg

DRUGS (5)
  1. EXENATIDE LONG ACTING RELEASE 2MG [Suspect]
     Indication: TYPE 2 DIABETES MELLITUS
     Dosage: UNK, WEEKLY (1/W)
     Route: 065
     Dates: start: 20120806, end: 20120813
  2. EXENATIDE LONG ACTING RELEASE 2MG [Suspect]
     Dosage: UNK, WEEKLY (1/W)
     Dates: start: 20120827
  3. LUVOX [Concomitant]
     Indication: DEPRESSION
     Dosage: 100 MG, QD
     Route: 048
     Dates: start: 1997
  4. MULTIVITAMIN [Concomitant]
     Indication: GENERAL PHYSICAL CONDITION
     Dosage: UNK, QD
     Route: 048
     Dates: start: 2006
  5. METFORMIN [Concomitant]
     Indication: TYPE 2 DIABETES MELLITUS
     Dosage: 500 MG, BID
     Route: 048
     Dates: start: 201101

REACTIONS (1)
  - Gastroenteritis [Recovered/Resolved]
